FAERS Safety Report 4748052-3 (Version None)
Quarter: 2005Q3

REPORT INFORMATION
  Report Type: 
  Country: None (occurrence: None)
  Receive Date: 20050818
  Receipt Date: 20050329
  Transmission Date: 20060218
  Serious: Yes (Hospitalization, Other)
  Sender: FDA-Public Use
  Company Number: US-GLAXOSMITHKLINE-A0555656A

PATIENT
  Age: 15 Year
  Sex: Female

DRUGS (1)
  1. PAXIL [Suspect]
     Indication: ANXIETY
     Dosage: 20MG UNKNOWN
     Route: 048
     Dates: start: 20040901

REACTIONS (18)
  - ADVERSE EVENT [None]
  - AGGRESSION [None]
  - AGITATION [None]
  - ANXIETY [None]
  - DEPRESSION [None]
  - DISSOCIATION [None]
  - HEAD BANGING [None]
  - HOSTILITY [None]
  - HYPOAESTHESIA [None]
  - IMPULSIVE BEHAVIOUR [None]
  - INTENTIONAL SELF-INJURY [None]
  - PANIC ATTACK [None]
  - PSYCHOMOTOR HYPERACTIVITY [None]
  - SELF MUTILATION [None]
  - SOCIAL AVOIDANT BEHAVIOUR [None]
  - SOMNOLENCE [None]
  - SUICIDAL IDEATION [None]
  - SUICIDE ATTEMPT [None]
